FAERS Safety Report 11220388 (Version 1)
Quarter: 2015Q2

REPORT INFORMATION
  Report Type: Spontaneous
  Country: US (occurrence: None)
  Receive Date: 20150625
  Receipt Date: 20150625
  Transmission Date: 20150821
  Serious: No
  Sender: FDA-Public Use
  Company Number: None

PATIENT
  Sex: Female

DRUGS (1)
  1. NORCO [Suspect]
     Active Substance: ACETAMINOPHEN\HYDROCODONE BITARTRATE
     Route: 048

REACTIONS (8)
  - Malaise [None]
  - Documented hypersensitivity to administered product [None]
  - Mallory-Weiss syndrome [None]
  - Hypercoagulation [None]
  - Drug prescribing error [None]
  - Vomiting [None]
  - Drug dispensing error [None]
  - Nausea [None]

NARRATIVE: CASE EVENT DATE: 2014
